FAERS Safety Report 4523227-7 (Version None)
Quarter: 2004Q4

REPORT INFORMATION
  Report Type: 
  Country: None (occurrence: None)
  Receive Date: 20041202
  Receipt Date: 20041122
  Transmission Date: 20050328
  Serious: Yes (Disabling)
  Sender: FDA-Public Use
  Company Number: 2004-02082

PATIENT
  Sex: Male

DRUGS (15)
  1. IMMUCYST (BCG - IT (CONNAUGHT)) [Suspect]
     Indication: BLADDER CANCER
     Dosage: 81.0 MG
     Dates: start: 20031124
  2. OFLOCET [Concomitant]
     Dosage: PO
  3. OFLOCET PLACEBO [Concomitant]
  4. IZILOX [Concomitant]
  5. RENUTRYL [Concomitant]
  6. DOLIPRANE [Concomitant]
  7. MICARDIS [Concomitant]
  8. DIMETANE [Concomitant]
  9. NOROXIN [Concomitant]
  10. EXACYL [Concomitant]
  11. NEXIUM [Concomitant]
  12. BACICOLINE [Concomitant]
  13. ZALDIER [Concomitant]
  14. INONGAM [Concomitant]
  15. DUPHALAC [Concomitant]

REACTIONS (7)
  - ANOREXIA [None]
  - COUGH [None]
  - DISSEMINATED TUBERCULOSIS [None]
  - GENERAL PHYSICAL HEALTH DETERIORATION [None]
  - MILIARY PNEUMONIA [None]
  - NODULE [None]
  - PYREXIA [None]
